FAERS Safety Report 5285043-0 (Version None)
Quarter: 2007Q2

REPORT INFORMATION
  Report Type: 
  Country: None (occurrence: None)
  Receive Date: 20070403
  Receipt Date: 20070131
  Transmission Date: 20071010
  Serious: Yes (Hospitalization)
  Sender: FDA-Public Use
  Company Number: US-PFIZER INC-2007019629

PATIENT

DRUGS (1)
  1. ALPRAZOLAM [Suspect]
     Dosage: TEXT:UNKNOWN

REACTIONS (3)
  - FALL [None]
  - SELF-MEDICATION [None]
  - THEFT [None]
